FAERS Safety Report 16073013 (Version 1)
Quarter: 2019Q1

REPORT INFORMATION
  Report Type: Report from Study
  Country: US (occurrence: US)
  Receive Date: 20190314
  Receipt Date: 20190314
  Transmission Date: 20190418
  Serious: Yes (Other)
  Sender: FDA-Public Use
  Company Number: PHEH2019US010482

PATIENT
  Age: 55 Year
  Sex: Female

DRUGS (1)
  1. GILENYA [Suspect]
     Active Substance: FINGOLIMOD HYDROCHLORIDE
     Indication: MULTIPLE SCLEROSIS
     Dosage: 0.5 MG, QD
     Route: 048
     Dates: start: 20180601, end: 20180622

REACTIONS (3)
  - Pruritus [Recovered/Resolved]
  - Dysuria [Recovered/Resolved]
  - Eye pruritus [Recovered/Resolved]

NARRATIVE: CASE EVENT DATE: 20180601
